FAERS Safety Report 9095732 (Version 1)
Quarter: 2013Q1

REPORT INFORMATION
  Report Type: Spontaneous
  Country: JP (occurrence: None)
  Receive Date: 20130124
  Receipt Date: 20130124
  Transmission Date: 20140127
  Serious: Yes (Death)
  Sender: FDA-Public Use
  Company Number: CIP-2013-00006

PATIENT
  Age: 72 Year
  Sex: Male

DRUGS (4)
  1. IRINOTECAN [Suspect]
     Indication: SMALL CELL LUNG CANCER
     Dosage: 40 MG/M2,DAYS 1,8, AND 15
  2. CISPLATIN [Suspect]
     Dosage: 60 MG/M2,DAY 1
  3. CHEMOTHERAPEUTICS NOS [Suspect]
     Dosage: 2 GY PER FRACTION ONCE DAILY WITH A SPLIT SCHEDULE (5 DAYS/WEEK FROM DAY 2 OF EACH CHEMO CYC), LINEAR ACCLERATOR
  4. CHEMOTHERAPEUTICS [Suspect]
     Dosage: 25 GY IN 10 FRACTIONS

REACTIONS (1)
  - Radiation pneumonitis [None]
